FAERS Safety Report 8715510 (Version 2)
Quarter: 2012Q4

REPORT INFORMATION
  Report Type: 
  Country: US (occurrence: US)
  Receive Date: 20120809
  Receipt Date: 20120829
  Transmission Date: 20130627
  Serious: Yes (Other)
  Sender: FDA-Public Use
  Company Number: US-PERRIGO-12US006612

PATIENT
  Age: 48 Year
  Sex: Male
  Weight: 78.01 kg

DRUGS (1)
  1. IBUPROFEN 200MG 517 [Suspect]
     Indication: EAR PAIN
     Dosage: 400 mg, Single
     Route: 048
     Dates: start: 20120729, end: 20120729

REACTIONS (9)
  - Anaphylactic reaction [Recovered/Resolved]
  - Dyspnoea [Recovered/Resolved]
  - Throat tightness [Recovered/Resolved]
  - Wheezing [Recovered/Resolved]
  - Swollen tongue [Recovered/Resolved]
  - Lip swelling [Recovered/Resolved]
  - Swelling face [Recovered/Resolved]
  - Oedema peripheral [Recovered/Resolved]
  - Urticaria [Recovered/Resolved]
